FAERS Safety Report 9040507 (Version 1)
Quarter: 2013Q1

REPORT INFORMATION
  Report Type: Report from Study
  Country: US (occurrence: US)
  Receive Date: 20130129
  Receipt Date: 20130129
  Transmission Date: 20140127
  Serious: No
  Sender: FDA-Public Use
  Company Number: US-ABBOTT-12P-163-0891270-00

PATIENT
  Age: 58 Year
  Sex: Male

DRUGS (4)
  1. HUMIRA 40 MG/0.8 ML PEN [Suspect]
     Indication: RHEUMATOID ARTHRITIS
     Dates: start: 201002
  2. MOTRIN [Concomitant]
     Indication: PAIN
  3. RESTASIS [Concomitant]
     Indication: DRY EYE
  4. SULFUR SOMETHING [Concomitant]
     Indication: RHEUMATOID ARTHRITIS

REACTIONS (10)
  - Injection site haemorrhage [Not Recovered/Not Resolved]
  - Chest pain [Unknown]
  - Pain in extremity [Unknown]
  - Ear infection [Unknown]
  - Influenza [Unknown]
  - Nasopharyngitis [Unknown]
  - Oropharyngeal pain [Unknown]
  - Dizziness [Unknown]
  - Headache [Unknown]
  - Local swelling [Unknown]
